FAERS Safety Report 7233138-4 (Version None)
Quarter: 2011Q1

REPORT INFORMATION
  Report Type: 
  Country: None (occurrence: None)
  Receive Date: 20110119
  Receipt Date: 20110106
  Transmission Date: 20110831
  Serious: No
  Sender: FDA-Public Use
  Company Number: US-B.I. PHARMACEUTICALS,INC./RIDGEFIELD-2011-BP-00765BP

PATIENT
  Age: 82 Year
  Sex: Female

DRUGS (5)
  1. PRADAXA [Suspect]
     Indication: ATRIAL FIBRILLATION
     Route: 048
     Dates: start: 20110105
  2. EYE VITAMINS [Concomitant]
     Indication: MACULAR DEGENERATION
  3. MULTAQ [Concomitant]
     Indication: ATRIAL FIBRILLATION
  4. LOTREL [Concomitant]
     Indication: HYPERTENSION
  5. EVISTA [Concomitant]
     Indication: OSTEOPOROSIS

REACTIONS (4)
  - TREMOR [None]
  - PALPITATIONS [None]
  - FEELING ABNORMAL [None]
  - BLOOD PRESSURE ABNORMAL [None]
